FAERS Safety Report 6545163-7 (Version None)
Quarter: 2010Q1

REPORT INFORMATION
  Report Type: 
  Country: None (occurrence: None)
  Receive Date: 20100121
  Receipt Date: 20100112
  Transmission Date: 20100710
  Serious: Yes (Other)
  Sender: FDA-Public Use
  Company Number: US-AMGEN-QUU383222

PATIENT
  Sex: Male

DRUGS (5)
  1. ENBREL [Suspect]
     Indication: PSORIASIS
     Route: 058
     Dates: start: 20091105
  2. METHOTREXATE [Concomitant]
     Route: 048
     Dates: start: 20090128
  3. CITALOPRAM [Concomitant]
  4. ACIPHEX [Concomitant]
  5. FEXOFENADINE [Concomitant]

REACTIONS (2)
  - ANAL FISSURE [None]
  - CONSTIPATION [None]
